FAERS Safety Report 8040954-8 (Version None)
Quarter: 2012Q1

REPORT INFORMATION
  Report Type: 
  Country: None (occurrence: None)
  Receive Date: 20120112
  Receipt Date: 20120104
  Transmission Date: 20120608
  Serious: No
  Sender: FDA-Public Use
  Company Number: US-BIOGENIDEC-2012BI000626

PATIENT
  Age: 36 Year
  Sex: Female

DRUGS (1)
  1. TYSABRI [Suspect]
     Indication: MULTIPLE SCLEROSIS
     Route: 042
     Dates: start: 20100927, end: 20110715

REACTIONS (5)
  - BAND SENSATION [None]
  - PAIN IN EXTREMITY [None]
  - ARTHRALGIA [None]
  - COGNITIVE DISORDER [None]
  - TREMOR [None]
